FAERS Safety Report 12265080 (Version 1)
Quarter: 2016Q2

REPORT INFORMATION
  Report Type: Spontaneous
  Country: JP (occurrence: JP)
  Receive Date: 20160413
  Receipt Date: 20160413
  Transmission Date: 20160815
  Serious: Yes (Hospitalization)
  Sender: FDA-Public Use
  Company Number: JP-BRISTOL-MYERS SQUIBB COMPANY-BMS-2016-010626

PATIENT
  Age: 85 Year
  Sex: Female
  Weight: 42.5 kg

DRUGS (5)
  1. ORENCIA [Suspect]
     Active Substance: ABATACEPT
     Indication: RHEUMATOID ARTHRITIS
     Dosage: 125 MG, UNK
     Route: 042
     Dates: start: 20111115
  2. ORENCIA [Suspect]
     Active Substance: ABATACEPT
     Indication: RHEUMATOID ARTHRITIS
     Dosage: 125 MG, QWK
     Route: 058
     Dates: end: 20160110
  3. METHOTREXATE [Suspect]
     Active Substance: METHOTREXATE
     Indication: RHEUMATOID ARTHRITIS
     Dosage: 10 MG, UNK
     Route: 065
  4. FOLIAMIN [Concomitant]
     Active Substance: FOLIC ACID
     Indication: PRODUCT USED FOR UNKNOWN INDICATION
     Dosage: 5 MG, QWK
     Route: 048
     Dates: end: 20160110
  5. METHOTREXATE [Suspect]
     Active Substance: METHOTREXATE
     Dosage: 6 MG, QWK
     Route: 065
     Dates: end: 20160110

REACTIONS (3)
  - Pyrexia [Recovered/Resolved]
  - Oropharyngeal pain [Unknown]
  - Interleukin-2 receptor increased [Unknown]

NARRATIVE: CASE EVENT DATE: 20160104
